FAERS Safety Report 8157818-1 (Version None)
Quarter: 2012Q1

REPORT INFORMATION
  Report Type: 
  Country: None (occurrence: None)
  Receive Date: 20120222
  Receipt Date: 20120222
  Transmission Date: 20120608
  Serious: Yes (Death)
  Sender: FDA-Public Use
  Company Number: US-ROXANE LABORATORIES, INC.-2012-RO-00627RO

PATIENT
  Sex: Male

DRUGS (14)
  1. TINZAPARIN [Concomitant]
     Dates: start: 20111027
  2. BENADRYL [Concomitant]
     Dates: start: 20111028
  3. CALCIUM [Concomitant]
     Dates: start: 20090101
  4. VITAMIN D [Concomitant]
     Dates: start: 20090101
  5. VITAMIN B COMPLEX CAP [Concomitant]
     Dates: start: 20090101
  6. DEXAMETHASONE [Suspect]
     Indication: MULTIPLE MYELOMA
     Route: 048
     Dates: start: 20111027, end: 20111208
  7. TYLENOL W/ CODEINE NO. 3 [Concomitant]
     Dates: start: 20100101
  8. EPREX [Concomitant]
     Dates: start: 20111028, end: 20111124
  9. ASCORBIC ACID [Concomitant]
     Dates: start: 20090101
  10. LENALIDOMIDE [Suspect]
     Indication: MULTIPLE MYELOMA
     Dosage: 25 MG
     Route: 048
     Dates: start: 20111027, end: 20111208
  11. CUREAMIN [Concomitant]
     Dates: start: 20090101
  12. LORATADINE [Concomitant]
     Dates: start: 20111028
  13. ALLERTON [Concomitant]
     Dates: start: 20111028
  14. ASPIRIN [Concomitant]
     Dates: start: 20080101, end: 20111024

REACTIONS (1)
  - DEATH [None]
